FAERS Safety Report 8435543-7 (Version None)
Quarter: 2012Q2

REPORT INFORMATION
  Report Type: 
  Country: None (occurrence: None)
  Receive Date: 20120614
  Receipt Date: 20120605
  Transmission Date: 20120825
  Serious: Yes (Other)
  Sender: FDA-Public Use
  Company Number: US-PFIZER INC-2012135232

PATIENT
  Sex: Female

DRUGS (3)
  1. LYRICA [Suspect]
     Dosage: 50 MG, UNK
  2. LYRICA [Suspect]
     Indication: NEURALGIA
     Dosage: 450 MG, UNK
  3. LYRICA [Suspect]
     Dosage: 150 MG, UNK

REACTIONS (7)
  - NEOPLASM SKIN [None]
  - JOINT SWELLING [None]
  - JOINT WARMTH [None]
  - WEIGHT INCREASED [None]
  - OEDEMA PERIPHERAL [None]
  - VISION BLURRED [None]
  - SKIN INFECTION [None]
